FAERS Safety Report 10043322 (Version 1)
Quarter: 2014Q1

REPORT INFORMATION
  Report Type: Spontaneous
  Country: US (occurrence: None)
  Receive Date: 20140327
  Receipt Date: 20140327
  Transmission Date: 20141002
  Serious: Yes (Life-Threatening)
  Sender: FDA-Public Use
  Company Number: None

PATIENT
  Age: 35 Year
  Sex: Male
  Weight: 84.82 kg

DRUGS (2)
  1. NASACORT [Suspect]
     Indication: RHINITIS ALLERGIC
     Dosage: 2 SPRAYS IN EACH NOSTRIL X 24H?
     Route: 045
     Dates: start: 20140301, end: 20140324
  2. NASACORT [Suspect]
     Indication: EUSTACHIAN TUBE DISORDER
     Dosage: 2 SPRAYS IN EACH NOSTRIL X 24H?
     Route: 045
     Dates: start: 20140301, end: 20140324

REACTIONS (1)
  - Hypertensive crisis [None]
